FAERS Safety Report 11633583 (Version 5)
Quarter: 2015Q4

REPORT INFORMATION
  Report Type: Spontaneous
  Country: BR (occurrence: BR)
  Receive Date: 20151015
  Receipt Date: 20151029
  Transmission Date: 20160304
  Serious: Yes (Other)
  Sender: FDA-Public Use
  Company Number: PHHY2015BR123735

PATIENT
  Sex: Male
  Weight: 164 kg

DRUGS (8)
  1. DIOVAN HCT [Suspect]
     Active Substance: HYDROCHLOROTHIAZIDE\VALSARTAN
     Indication: HYPERTENSION
     Dosage: 1 DF, QD
     Route: 048
  2. DIVELOL [Concomitant]
     Indication: CARDIOVASCULAR EVENT PROPHYLAXIS
     Dosage: 1 DF , BID (ONE TABLET IN THE MORNING AND ANOTHER AT NIGHT)
     Route: 048
  3. ENALAPRIL MALEATE. [Concomitant]
     Active Substance: ENALAPRIL MALEATE
     Indication: PRODUCT USED FOR UNKNOWN INDICATION
     Dosage: 2 DF, BID (2 TABLETS AT 7 AM AND 2 AT 7 PM)
     Route: 065
  4. ELIQUIS [Concomitant]
     Active Substance: APIXABAN
     Indication: TACHYCARDIA
  5. CODEINUM [Concomitant]
     Indication: PRODUCT USED FOR UNKNOWN INDICATION
     Dosage: 1 DF, BID (1 TABLET AT 9 AM AND 1 TABLET AT 9 PM)
     Route: 065
  6. ELIQUIS [Concomitant]
     Active Substance: APIXABAN
     Indication: CARDIOVASCULAR EVENT PROPHYLAXIS
     Dosage: 1 DF, BID (ONE AT 7 AM AND OTHER AT 7 PM)
     Route: 048
  7. ANGIOPRIL//CAPTOPRIL [Concomitant]
     Indication: CARDIAC DISORDER
     Dosage: 2 DF, BID (2 TABLETS IN THE MORNIGN AND 2 TABLETS AT NIGHT)
     Route: 048
  8. ALOPURINOL [Concomitant]
     Active Substance: ALLOPURINOL
     Indication: PRODUCT USED FOR UNKNOWN INDICATION
     Dosage: 1 DF, QD (AT 12 PM)
     Route: 065

REACTIONS (6)
  - Cardiac disorder [Unknown]
  - Dilatation atrial [Not Recovered/Not Resolved]
  - Hypertension [Recovered/Resolved]
  - Heart rate irregular [Unknown]
  - Drug ineffective [Unknown]
  - Tachycardia [Recovered/Resolved]
